FAERS Safety Report 18806958 (Version 1)
Quarter: 2021Q1

REPORT INFORMATION
  Report Type: Spontaneous
  Country: US (occurrence: US)
  Receive Date: 20210128
  Receipt Date: 20210128
  Transmission Date: 20210419
  Serious: Yes (Other)
  Sender: FDA-Public Use
  Company Number: None

PATIENT
  Age: 71 Year
  Sex: Male
  Weight: 115.65 kg

DRUGS (2)
  1. MULTIHANCE [Suspect]
     Active Substance: GADOBENATE DIMEGLUMINE
     Indication: MAGNETIC RESONANCE IMAGING
     Dosage: ?          OTHER FREQUENCY:SINGLE DOSE;?
     Route: 040
     Dates: start: 20210128, end: 20210128
  2. MULTIHANCE [Suspect]
     Active Substance: GADOBENATE DIMEGLUMINE
     Indication: SCAN WITH CONTRAST
     Dosage: ?          OTHER FREQUENCY:SINGLE DOSE;?
     Route: 040
     Dates: start: 20210128, end: 20210128

REACTIONS (5)
  - Hyperhidrosis [None]
  - Syncope [None]
  - Muscular weakness [None]
  - Cold sweat [None]
  - Conjunctival hyperaemia [None]

NARRATIVE: CASE EVENT DATE: 20210128
